FAERS Safety Report 8452377-8 (Version None)
Quarter: 2012Q2

REPORT INFORMATION
  Report Type: 
  Country: None (occurrence: None)
  Receive Date: 20120620
  Receipt Date: 20120406
  Transmission Date: 20120825
  Serious: No
  Sender: FDA-Public Use
  Company Number: US-VERTEX PHARMACEUTICALS INC.-AE-2012-005080

PATIENT
  Sex: Female
  Weight: 55.842 kg

DRUGS (10)
  1. PEGASYS [Concomitant]
     Indication: HEPATITIS C
     Route: 058
     Dates: start: 20120402
  2. CLONAZEPAM [Concomitant]
     Indication: PANIC ATTACK
  3. CLONAZEPAM [Concomitant]
     Indication: ANXIETY
  4. SERTRALINE HYDROCHLORIDE [Concomitant]
     Indication: DEPRESSION
  5. INCIVEK [Suspect]
     Indication: HEPATITIS C
     Route: 048
     Dates: start: 20120402
  6. AMBIEN [Concomitant]
  7. ADDERALL 5 [Concomitant]
     Indication: ATTENTION DEFICIT/HYPERACTIVITY DISORDER
  8. PREMARIN [Concomitant]
     Indication: MENOPAUSAL SYMPTOMS
     Route: 048
  9. ADDERALL XR 10 [Concomitant]
     Indication: ATTENTION DEFICIT/HYPERACTIVITY DISORDER
     Route: 048
  10. RIBAVIRIN [Concomitant]
     Indication: HEPATITIS C
     Dates: start: 20120402

REACTIONS (2)
  - PRURITUS GENERALISED [None]
  - RASH PAPULAR [None]
